FAERS Safety Report 4822740-2 (Version None)
Quarter: 2005Q4

REPORT INFORMATION
  Report Type: 
  Country: None (occurrence: None)
  Receive Date: 20051108
  Receipt Date: 20051019
  Transmission Date: 20060501
  Serious: Yes (Hospitalization)
  Sender: FDA-Public Use
  Company Number: 2005SE05988

PATIENT
  Age: 25764 Day
  Sex: Female

DRUGS (3)
  1. TENORMIN [Suspect]
     Indication: HYPERTENSION
     Dates: start: 20050101
  2. ALBYL-E [Concomitant]
     Indication: PLATELET AGGREGATION INHIBITION
     Route: 048
  3. ZYRTEC [Concomitant]
     Indication: HYPERSENSITIVITY
     Route: 048

REACTIONS (5)
  - BALANCE DISORDER [None]
  - DIZZINESS [None]
  - FALL [None]
  - LOSS OF CONSCIOUSNESS [None]
  - MALAISE [None]
